FAERS Safety Report 7597875-4 (Version None)
Quarter: 2011Q3

REPORT INFORMATION
  Report Type: 
  Country: None (occurrence: None)
  Receive Date: 20110708
  Receipt Date: 20110628
  Transmission Date: 20111222
  Serious: Yes (Hospitalization, Other)
  Sender: FDA-Public Use
  Company Number: US-MERCK-1104USA03481

PATIENT
  Age: 56 Year
  Sex: Male

DRUGS (4)
  1. NOVOLIN 70/30 [Concomitant]
     Indication: DIABETES MELLITUS
     Route: 065
     Dates: start: 20050101
  2. [THERAPY UNSPECIFIED] [Concomitant]
     Route: 065
     Dates: start: 19890101
  3. CATAPRES [Concomitant]
     Indication: HYPERTENSION
     Route: 065
     Dates: start: 19890101
  4. FOSAMAX [Suspect]
     Indication: OSTEOPOROSIS
     Route: 048
     Dates: start: 20060401, end: 20070501

REACTIONS (4)
  - ARTHROPATHY [None]
  - NECROSIS [None]
  - FEMUR FRACTURE [None]
  - RENAL FAILURE [None]
